FAERS Safety Report 5599738-2 (Version None)
Quarter: 2008Q1

REPORT INFORMATION
  Report Type: 
  Country: None (occurrence: None)
  Receive Date: 20080117
  Receipt Date: 20080102
  Transmission Date: 20080703
  Serious: Yes (Other)
  Sender: FDA-Public Use
  Company Number: 230152M07CAN

PATIENT
  Age: 33 Year
  Sex: Female

DRUGS (1)
  1. REBIF [Suspect]
     Dosage: 17 MCG, 1 IN 1 WEEKS
     Dates: start: 20030101, end: 20071116

REACTIONS (2)
  - ABORTION SPONTANEOUS [None]
  - DRUG EXPOSURE DURING PREGNANCY [None]
